FAERS Safety Report 17458642 (Version 2)
Quarter: 2020Q3

REPORT INFORMATION
  Report Type: Report from Study
  Country: US (occurrence: US)
  Receive Date: 20200225
  Receipt Date: 20200731
  Transmission Date: 20201102
  Serious: Yes (Hospitalization)
  Sender: FDA-Public Use
  Company Number: US-ACTELION-A-NJ2020-202064

PATIENT
  Age: 39 Year
  Sex: Female

DRUGS (3)
  1. OPSUMIT [Suspect]
     Active Substance: MACITENTAN
     Indication: PULMONARY HYPERTENSION
     Dosage: 10 MG, QD
     Route: 048
     Dates: start: 20191210
  2. BUMEX [Concomitant]
     Active Substance: BUMETANIDE
     Dosage: UNK
  3. FUROSEMIDE. [Concomitant]
     Active Substance: FUROSEMIDE
     Route: 048

REACTIONS (14)
  - Vomiting [Unknown]
  - Oedema peripheral [Unknown]
  - Congestive hepatopathy [Unknown]
  - Varicose veins pelvic [Unknown]
  - Treatment noncompliance [Unknown]
  - Cardiomegaly [Unknown]
  - Abdominal pain [Unknown]
  - Nausea [Unknown]
  - Impaired gastric emptying [Unknown]
  - Neoplasm malignant [Unknown]
  - Uterine leiomyoma [Unknown]
  - Abdominal pain upper [Unknown]
  - Cardiac failure acute [Unknown]
  - Hypophagia [Unknown]

NARRATIVE: CASE EVENT DATE: 20200120
